FAERS Safety Report 9130899 (Version 1)
Quarter: 2013Q1

REPORT INFORMATION
  Report Type: Spontaneous
  Country: US (occurrence: US)
  Receive Date: 20130301
  Receipt Date: 20130301
  Transmission Date: 20140127
  Serious: No
  Sender: FDA-Public Use
  Company Number: US-MYLANLABS-2012S1011607

PATIENT
  Sex: Male

DRUGS (2)
  1. METOPROLOL TARTRATE TABLETS, USP [Suspect]
     Indication: BLOOD PRESSURE
     Route: 048
  2. METOPROLOL TARTRATE TABLETS, USP [Suspect]
     Indication: BLOOD PRESSURE
     Route: 048

REACTIONS (2)
  - Abdominal distension [Not Recovered/Not Resolved]
  - Diarrhoea [Not Recovered/Not Resolved]
